FAERS Safety Report 6117944-5 (Version None)
Quarter: 2009Q1

REPORT INFORMATION
  Report Type: 
  Country: None (occurrence: None)
  Receive Date: 20090314
  Receipt Date: 20090202
  Transmission Date: 20090719
  Serious: No
  Sender: FDA-Public Use
  Company Number: US-ABBOTT-09P-163-0501517-00

PATIENT
  Sex: Female
  Weight: 70.37 kg

DRUGS (4)
  1. HUMIRA [Suspect]
     Indication: CROHN'S DISEASE
     Dosage: LOADING DOSE
     Route: 058
     Dates: start: 20081205, end: 20090101
  2. HUMIRA [Suspect]
     Dates: start: 20090101, end: 20090201
  3. HUMIRA [Suspect]
     Dates: start: 20090201
  4. BENICAR [Concomitant]
     Indication: HYPERTENSION

REACTIONS (5)
  - INCORRECT DRUG ADMINISTRATION DURATION [None]
  - INJECTION SITE HAEMORRHAGE [None]
  - INJECTION SITE PAIN [None]
  - UNDERDOSE [None]
  - WRONG TECHNIQUE IN DRUG USAGE PROCESS [None]
